FAERS Safety Report 20861875 (Version 1)
Quarter: 2022Q2

REPORT INFORMATION
  Report Type: Report from Study
  Country: CA (occurrence: CA)
  Receive Date: 20220523
  Receipt Date: 20220523
  Transmission Date: 20220721
  Serious: Yes (Other)
  Sender: FDA-Public Use
  Company Number: CA-GLAXOSMITHKLINE-CA2022080483

PATIENT

DRUGS (1)
  1. MEPOLIZUMAB [Suspect]
     Active Substance: MEPOLIZUMAB
     Indication: Asthma
     Dosage: 100 MG, Z(EVERY 4 WEEKS)
     Route: 058
     Dates: start: 20190221

REACTIONS (5)
  - Clostridium difficile infection [Unknown]
  - Gout [Unknown]
  - Pharyngeal neoplasm [Unknown]
  - Lung neoplasm [Unknown]
  - Diarrhoea [Not Recovered/Not Resolved]
